FAERS Safety Report 15694731 (Version 2)
Quarter: 2019Q1

REPORT INFORMATION
  Report Type: Spontaneous
  Country: JP (occurrence: JP)
  Receive Date: 20181206
  Receipt Date: 20190117
  Transmission Date: 20190417
  Serious: Yes (Hospitalization, Other)
  Sender: FDA-Public Use
  Company Number: JP-PFIZER INC-2018495713

PATIENT
  Age: 49 Year
  Sex: Female

DRUGS (4)
  1. PREMARIN [Suspect]
     Active Substance: ESTROGENS, CONJUGATED
     Indication: MENSTRUATION IRREGULAR
     Dosage: 0.625 MG, ONCE DAILY
     Route: 048
     Dates: start: 20120120, end: 201811
  2. DUPHASTON [Concomitant]
     Active Substance: DYDROGESTERONE
     Indication: OVARIAN FAILURE
  3. PREMARIN [Suspect]
     Active Substance: ESTROGENS, CONJUGATED
     Indication: OVARIAN FAILURE
  4. DUPHASTON [Concomitant]
     Active Substance: DYDROGESTERONE
     Indication: MENSTRUATION IRREGULAR
     Dosage: 5 MG, ONCE DAILY
     Route: 048
     Dates: start: 20120120, end: 201811

REACTIONS (2)
  - Blood aldosterone increased [Unknown]
  - Intracranial artery dissection [Recovered/Resolved]

NARRATIVE: CASE EVENT DATE: 2018
